FAERS Safety Report 6401786-7 (Version None)
Quarter: 2009Q4

REPORT INFORMATION
  Report Type: 
  Country: None (occurrence: None)
  Receive Date: 20091013
  Receipt Date: 20091013
  Transmission Date: 20100525
  Serious: Yes (Other)
  Sender: FDA-Public Use
  Company Number: None

PATIENT
  Age: 68 Year
  Sex: Female
  Weight: 79.3795 kg

DRUGS (1)
  1. TRILIPIX [Suspect]
     Indication: HYPERCHOLESTEROLAEMIA
     Dosage: 45 MG ONCE DAILY PO
     Route: 048

REACTIONS (3)
  - MIDDLE INSOMNIA [None]
  - MUSCLE SPASMS [None]
  - PAIN [None]
